FAERS Safety Report 20345989 (Version 35)
Quarter: 2024Q4

REPORT INFORMATION
  Report Type: Spontaneous
  Country: IN (occurrence: IN)
  Receive Date: 20220118
  Receipt Date: 20241216
  Transmission Date: 20250115
  Serious: Yes (Other)
  Sender: PFIZER
  Company Number: IN-PFIZER INC-2021245193

PATIENT
  Age: 62 Year
  Sex: Female
  Weight: 78.2 kg

DRUGS (13)
  1. PALBOCICLIB [Suspect]
     Active Substance: PALBOCICLIB
     Indication: Breast cancer metastatic
     Dosage: ONCE DAILY FOR 21 DAYS, 7 DAYS GAP
     Route: 048
     Dates: start: 20200930
  2. PALBOCICLIB [Suspect]
     Active Substance: PALBOCICLIB
     Dosage: ONCE DAILY FOR 21 DAYS, 7 DAYS GAP
     Route: 048
     Dates: start: 20201001
  3. PALBOCICLIB [Suspect]
     Active Substance: PALBOCICLIB
     Indication: Breast cancer metastatic
     Dosage: ONCE DAILY FOR 21 DAYS, 7 DAYS GAP
     Route: 048
     Dates: start: 20220711
  4. PALBOCICLIB [Suspect]
     Active Substance: PALBOCICLIB
     Dosage: 1X/DAY X 21 DAYS
     Route: 048
     Dates: start: 20221121
  5. PALBOCICLIB [Suspect]
     Active Substance: PALBOCICLIB
     Dosage: 1X/DAY X 21 DAYS
     Route: 048
     Dates: start: 20221222
  6. PALBOCICLIB [Suspect]
     Active Substance: PALBOCICLIB
     Dosage: 1X/DAY X 21 DAYS, 7 DAYS GAP
     Route: 048
     Dates: start: 20230125
  7. PALBOCICLIB [Suspect]
     Active Substance: PALBOCICLIB
     Dosage: ONCE A DAY X 21 DAYS
     Route: 048
     Dates: start: 20240327
  8. LETROZOLE [Concomitant]
     Active Substance: LETROZOLE
     Dosage: 2.5 MG, 1X/DAY
     Dates: start: 202009
  9. ZOLEDRONIC ACID [Concomitant]
     Active Substance: ZOLEDRONIC ACID
     Dosage: UNK
     Dates: start: 202009
  10. ZOLEDRONIC ACID [Concomitant]
     Active Substance: ZOLEDRONIC ACID
     Dosage: 4 MG, 1X/DAY
     Dates: start: 20201224
  11. ZOLEDRONIC ACID [Concomitant]
     Active Substance: ZOLEDRONIC ACID
     Dosage: 4 MG (X 1 DAYS (IMMEDIATELY-SPECIFY TIME AND DATE))
     Dates: start: 20230125
  12. CALCIUM CARBONATE\CHOLECALCIFEROL [Concomitant]
     Active Substance: CALCIUM CARBONATE\CHOLECALCIFEROL
     Dosage: UNK, 1X/DAY (500MG/500IU ONCE DAILY)
     Dates: start: 20201224
  13. CALCIUM CARBONATE\CHOLECALCIFEROL [Concomitant]
     Active Substance: CALCIUM CARBONATE\CHOLECALCIFEROL
     Dosage: 500 MG, 1X/DAY

REACTIONS (24)
  - Carcinoembryonic antigen increased [Recovering/Resolving]
  - Overweight [Recovering/Resolving]
  - Mouth ulceration [Unknown]
  - Nausea [Recovered/Resolved]
  - Blood calcium decreased [Unknown]
  - Illness [Unknown]
  - White blood cell disorder [Unknown]
  - Haemoglobin abnormal [Unknown]
  - Neutrophil count abnormal [Unknown]
  - Blood urea abnormal [Unknown]
  - Red blood cell count abnormal [Unknown]
  - Platelet count abnormal [Unknown]
  - Blood pressure increased [Not Recovered/Not Resolved]
  - White blood cell count decreased [Unknown]
  - Respiratory rate increased [Unknown]
  - Arthralgia [Unknown]
  - Swelling face [Recovered/Resolved]
  - Aphthous ulcer [Recovered/Resolved]
  - Peripheral swelling [Recovered/Resolved]
  - Haematocrit decreased [Unknown]
  - Pain in extremity [Unknown]
  - Cancer pain [Unknown]
  - Carbohydrate antigen 15-3 increased [Unknown]
  - Sleep disorder [Unknown]

NARRATIVE: CASE EVENT DATE: 20201201
